FAERS Safety Report 6580319-9 (Version None)
Quarter: 2010Q1

REPORT INFORMATION
  Report Type: 
  Country: None (occurrence: None)
  Receive Date: 20100212
  Receipt Date: 20091126
  Transmission Date: 20100710
  Serious: No
  Sender: FDA-Public Use
  Company Number: US-ALLERGAN-0916496US

PATIENT
  Sex: Male

DRUGS (2)
  1. COMBIGAN [Suspect]
     Indication: GLAUCOMA
     Dosage: 2 GTT:  7AM, 7PM
     Route: 047
     Dates: start: 20091126
  2. XALATAN [Concomitant]
     Dosage: 1 GTT, QHS

REACTIONS (4)
  - BLEPHARITIS [None]
  - EYE PRURITUS [None]
  - EYE SWELLING [None]
  - SWELLING FACE [None]
